FAERS Safety Report 11812142 (Version 2)
Quarter: 2015Q4

REPORT INFORMATION
  Report Type: Spontaneous
  Country: US (occurrence: US)
  Receive Date: 20151208
  Receipt Date: 20151208
  Transmission Date: 20160305
  Serious: Yes (Other)
  Sender: FDA-Public Use
  Company Number: US-LPDUSPRD-20150060

PATIENT
  Sex: Female
  Weight: 55.9 kg

DRUGS (2)
  1. VENOFER [Suspect]
     Active Substance: IRON SUCROSE
     Dosage: DOSE NOT PROVIDED
     Route: 065
     Dates: start: 2014, end: 20150115
  2. ETHEOGEN [Concomitant]
     Dosage: 24,000 UNITS PER WEEK
     Route: 065

REACTIONS (2)
  - Extravasation [Recovered/Resolved with Sequelae]
  - Injection site discolouration [Recovered/Resolved with Sequelae]
